FAERS Safety Report 23332928 (Version 2)
Quarter: 2024Q4

REPORT INFORMATION
  Report Type: Spontaneous
  Country: PT (occurrence: PT)
  Receive Date: 20231222
  Receipt Date: 20241025
  Transmission Date: 20250115
  Serious: Yes (Death, Other)
  Sender: RANBAXY
  Company Number: PT-SUN PHARMACEUTICAL INDUSTRIES LTD-2023R1-424965

PATIENT
  Age: 6 Decade
  Sex: Male

DRUGS (2)
  1. BUPROPION [Suspect]
     Active Substance: BUPROPION
     Indication: Major depression
     Dosage: 300 MILLIGRAM, QD
     Route: 065
  2. BUPROPION [Suspect]
     Active Substance: BUPROPION
     Dosage: 2100 MILLIGRAM
     Route: 065

REACTIONS (4)
  - Incorrect route of product administration [Fatal]
  - Cardio-respiratory arrest [Fatal]
  - Intentional product misuse [Fatal]
  - Overdose [Fatal]
